FAERS Safety Report 21374402 (Version 1)
Quarter: 2022Q3

REPORT INFORMATION
  Report Type: Spontaneous
  Country: DE (occurrence: DE)
  Receive Date: 20220926
  Receipt Date: 20220926
  Transmission Date: 20221027
  Serious: Yes (Other)
  Sender: FDA-Public Use
  Company Number: DE-NOVARTISPH-NVSC2022DE212178

PATIENT
  Age: 58 Year
  Sex: Male

DRUGS (11)
  1. DORZOLAMIDE [Suspect]
     Active Substance: DORZOLAMIDE
     Indication: Product used for unknown indication
     Dosage: UNK (THE RIGHT EYE HAS BEEN TREATED LOCALLY WITH ANTI-GLAUCOMATOUS EYE DROPS (CLONIDINE, DORZOLAMIDE
     Route: 065
  2. LATANOPROST [Suspect]
     Active Substance: LATANOPROST
     Indication: Product used for unknown indication
     Dosage: UNK (THE RIGHT EYE HAS BEEN TREATED LOCALLY WITH ANTI-GLAUCOMATOUS EYE DROPS (CLONIDINE, DORZOLAMIDE
     Route: 065
  3. TIMOLOL [Suspect]
     Active Substance: TIMOLOL
     Indication: Product used for unknown indication
     Dosage: UNK (THE RIGHT EYE HAS BEEN TREATED LOCALLY WITH ANTI-GLAUCOMATOUS EYE DROPS (CLONIDINE, DORZOLAMIDE
     Route: 065
  4. MACITENTAN [Concomitant]
     Active Substance: MACITENTAN
     Indication: Product used for unknown indication
     Dosage: UNK
     Route: 065
  5. PREGABALIN [Concomitant]
     Active Substance: PREGABALIN
     Indication: Product used for unknown indication
     Dosage: UNK
     Route: 065
  6. CORTISONE [Concomitant]
     Active Substance: CORTISONE
     Indication: Product used for unknown indication
     Dosage: UNK (THE LEFT EYE HAS UNDERGONE POSTOPERATIVE THERAPY (CORTISONE AND ANTIBIOTIC THERAPY) AFTER PHACO
     Route: 065
  7. ACETAZOLAMIDE [Concomitant]
     Active Substance: ACETAZOLAMIDE
     Indication: Product used for unknown indication
     Dosage: ACETAZOLAMIDE 125 MG PER OS TWICE DAILY (ROUTE ADMINISTRATION OS)
     Route: 065
  8. TADALAFIL [Concomitant]
     Active Substance: TADALAFIL
     Indication: Product used for unknown indication
     Dosage: UNK
     Route: 065
  9. IRON [Concomitant]
     Active Substance: IRON
     Indication: Product used for unknown indication
     Dosage: UNK
     Route: 065
  10. HYDROCORTISONE [Concomitant]
     Active Substance: HYDROCORTISONE
     Indication: Product used for unknown indication
     Dosage: UNK
     Route: 065
  11. CLONIDINE [Concomitant]
     Active Substance: CLONIDINE
     Indication: Product used for unknown indication
     Dosage: UNK (THE RIGHT EYE HAS BEEN TREATED LOCALLY WITH ANTI-GLAUCOMATOUS EYE DROPS (CLONIDINE, DORZOLAMIDE
     Route: 065

REACTIONS (4)
  - Visual impairment [Unknown]
  - General physical health deterioration [Unknown]
  - Drug ineffective [Unknown]
  - Rash [Unknown]
